FAERS Safety Report 24807738 (Version 8)
Quarter: 2025Q1

REPORT INFORMATION
  Report Type: Report from Study
  Country: ES (occurrence: ES)
  Receive Date: 20250105
  Receipt Date: 20250221
  Transmission Date: 20250408
  Serious: Yes (Hospitalization)
  Sender: ABBVIE
  Company Number: ES-ABBVIE-6059467

PATIENT
  Age: 78 Year
  Sex: Male

DRUGS (2)
  1. CARBIDOPA\LEVODOPA [Suspect]
     Active Substance: CARBIDOPA\LEVODOPA
     Indication: Parkinson^s disease
     Route: 058
     Dates: start: 20250123
  2. CARBIDOPA\LEVODOPA [Suspect]
     Active Substance: CARBIDOPA\LEVODOPA
     Route: 058
     Dates: start: 20241203, end: 202501

REACTIONS (9)
  - Pneumonia [Recovered/Resolved]
  - Fall [Not Recovered/Not Resolved]
  - Loss of personal independence in daily activities [Recovered/Resolved]
  - Hallucination, visual [Not Recovered/Not Resolved]
  - Drug ineffective [Not Recovered/Not Resolved]
  - General physical health deterioration [Unknown]
  - Patient elopement [Unknown]
  - Parkinson^s disease [Recovering/Resolving]
  - Therapeutic product effect incomplete [Not Recovered/Not Resolved]

NARRATIVE: CASE EVENT DATE: 20241201
